FAERS Safety Report 18242491 (Version 1)
Quarter: 2020Q3

REPORT INFORMATION
  Report Type: Spontaneous
  Country: US (occurrence: US)
  Receive Date: 20200908
  Receipt Date: 20200908
  Transmission Date: 20201103
  Serious: No
  Sender: FDA-Public Use
  Company Number: US-XTTRIUM LABORATORIES, INC-2089484

PATIENT

DRUGS (1)
  1. CHLORHEXIDINE GLUCONATE. [Suspect]
     Active Substance: CHLORHEXIDINE GLUCONATE
     Indication: KNEE OPERATION
     Route: 048

REACTIONS (3)
  - Oral mucosal blistering [Unknown]
  - Sputum discoloured [Unknown]
  - Stomatitis [Unknown]
